FAERS Safety Report 22173236 (Version 1)
Quarter: 2023Q2

REPORT INFORMATION
  Report Type: Spontaneous
  Country: US (occurrence: US)
  Receive Date: 20230404
  Receipt Date: 20230404
  Transmission Date: 20230722
  Serious: Yes (Other)
  Sender: FDA-Public Use
  Company Number: US-002147023-NVSC2023US076565

PATIENT
  Age: 94 Year
  Sex: Female

DRUGS (4)
  1. BEOVU [Suspect]
     Active Substance: BROLUCIZUMAB-DBLL
     Indication: Age-related macular degeneration
     Dosage: UNK (OD RIGHT EYE) (TIME PERIOD: 50)
     Route: 065
     Dates: start: 20210310
  2. BEOVU [Suspect]
     Active Substance: BROLUCIZUMAB-DBLL
     Dosage: UNK (OD RIGHT EYE) (TIME PERIOD: 28)
     Route: 065
     Dates: start: 20210407
  3. BEOVU [Suspect]
     Active Substance: BROLUCIZUMAB-DBLL
     Dosage: UNK (OD RIGHT EYE) (TIME PERIOD: 28)
     Route: 065
     Dates: start: 20210505
  4. BEOVU [Suspect]
     Active Substance: BROLUCIZUMAB-DBLL
     Dosage: UNK
     Route: 065
     Dates: start: 20210519

REACTIONS (2)
  - Retinal vasculitis [Recovered/Resolved]
  - Retinal vascular occlusion [Recovered/Resolved]

NARRATIVE: CASE EVENT DATE: 20210519
